FAERS Safety Report 24122051 (Version 1)
Quarter: 2024Q3

REPORT INFORMATION
  Report Type: Spontaneous
  Country: US (occurrence: US)
  Receive Date: 20240722
  Receipt Date: 20240722
  Transmission Date: 20241017
  Serious: Yes (Hospitalization, Congenital Anomaly, Other)
  Sender: GLAXOSMITHKLINE
  Company Number: US-GLAXOSMITHKLINE-US2024GSK091571

PATIENT

DRUGS (4)
  1. VALACYCLOVIR [Suspect]
     Active Substance: VALACYCLOVIR HYDROCHLORIDE
     Indication: Herpes simplex
     Dosage: 1000 MG, BID
     Route: 063
  2. VALACYCLOVIR [Suspect]
     Active Substance: VALACYCLOVIR HYDROCHLORIDE
     Dosage: 1000 MG, QD
     Route: 063
  3. MUPIROCIN [Suspect]
     Active Substance: MUPIROCIN
     Indication: Herpes simplex
     Dosage: UNK
     Route: 063
  4. ACYCLOVIR [Suspect]
     Active Substance: ACYCLOVIR
     Indication: Herpes simplex
     Dosage: 4-6 TIMES PER DAY
     Route: 063

REACTIONS (9)
  - Herpes simplex encephalitis [Recovered/Resolved]
  - Disseminated neonatal herpes simplex [Recovered/Resolved]
  - Vertical infection transmission [Recovered/Resolved]
  - Infantile apnoea [Recovered/Resolved]
  - Fever neonatal [Recovered/Resolved]
  - Neonatal seizure [Recovered/Resolved]
  - Lethargy [Recovered/Resolved]
  - Herpes simplex [Recovered/Resolved]
  - Exposure via breast milk [Unknown]
